FAERS Safety Report 5536943-5 (Version None)
Quarter: 2007Q4

REPORT INFORMATION
  Report Type: 
  Country: None (occurrence: None)
  Receive Date: 20071207
  Receipt Date: 20071130
  Transmission Date: 20080405
  Serious: Yes (Other)
  Sender: FDA-Public Use
  Company Number: PHBS2007BE19151

PATIENT
  Age: 75 Year
  Sex: Male

DRUGS (5)
  1. ZOMETA [Suspect]
     Indication: MULTIPLE MYELOMA
     Dates: start: 20040515, end: 20060502
  2. THALIDOMID [Concomitant]
     Dosage: 50-100MG, DAILY
     Dates: start: 20060307
  3. DEXAMETHASONE TAB [Concomitant]
  4. LISINOPRIL [Concomitant]
     Dates: start: 20040101
  5. LESCOL [Concomitant]
     Dates: start: 20040101

REACTIONS (2)
  - OSTEONECROSIS [None]
  - TOOTH EXTRACTION [None]
